FAERS Safety Report 17656297 (Version 2)
Quarter: 2020Q2

REPORT INFORMATION
  Report Type: Spontaneous
  Country: BR (occurrence: BR)
  Receive Date: 20200410
  Receipt Date: 20200427
  Transmission Date: 20200713
  Serious: Yes (Death, Hospitalization, Other)
  Sender: FDA-Public Use
  Company Number: BR-ASTRAZENECA-2020SE37679

PATIENT
  Age: 659 Month
  Sex: Male

DRUGS (10)
  1. BROMOPRIDE [Concomitant]
     Active Substance: BROMOPRIDE
     Indication: VOMITING
  2. ESOMEPRAZOL [Suspect]
     Active Substance: ESOMEPRAZOLE
     Indication: BLOOD PRESSURE MEASUREMENT
     Route: 048
     Dates: start: 20200308
  3. ESOMEPRAZOL [Suspect]
     Active Substance: ESOMEPRAZOLE
     Indication: MYOCARDIAL INFARCTION
     Route: 048
     Dates: start: 20200308
  4. BROMOPRIDE [Concomitant]
     Active Substance: BROMOPRIDE
     Indication: ABDOMINAL PAIN UPPER
  5. OLMECOR [Concomitant]
     Active Substance: OLMESARTAN MEDOXOMIL
     Indication: BLOOD PRESSURE MEASUREMENT
  6. ESOMEPRAZOL [Suspect]
     Active Substance: ESOMEPRAZOLE
     Indication: VOMITING
     Route: 048
     Dates: start: 20200307
  7. ESOMEPRAZOL [Suspect]
     Active Substance: ESOMEPRAZOLE
     Indication: MYOCARDIAL INFARCTION
     Route: 048
     Dates: start: 20200307
  8. ESOMEPRAZOL [Suspect]
     Active Substance: ESOMEPRAZOLE
     Indication: BLOOD PRESSURE MEASUREMENT
     Route: 048
     Dates: start: 20200307
  9. ESOMEPRAZOL [Suspect]
     Active Substance: ESOMEPRAZOLE
     Indication: VOMITING
     Route: 048
     Dates: start: 20200308
  10. ROXFLAN [Concomitant]
     Active Substance: AMLODIPINE BESYLATE
     Indication: BLOOD PRESSURE MEASUREMENT

REACTIONS (6)
  - Dyspnoea [Fatal]
  - Renal failure [Fatal]
  - Myocardial infarction [Fatal]
  - Intentional product misuse [Recovered/Resolved]
  - Off label use [Unknown]
  - Dizziness [Fatal]

NARRATIVE: CASE EVENT DATE: 202003
